FAERS Safety Report 9232283 (Version 2)
Quarter: 2013Q2

REPORT INFORMATION
  Report Type: Report from Study
  Country: US (occurrence: US)
  Receive Date: 20130415
  Receipt Date: 20130510
  Transmission Date: 20140414
  Serious: Yes (Hospitalization)
  Sender: FDA-Public Use
  Company Number: US-US-EMD SERONO, INC.-7204625

PATIENT
  Sex: Female

DRUGS (1)
  1. REBIF [Suspect]
     Indication: MULTIPLE SCLEROSIS
     Route: 058
     Dates: start: 20121127

REACTIONS (6)
  - Urinary tract infection [Recovering/Resolving]
  - Cystitis haemorrhagic [Recovering/Resolving]
  - Urinary incontinence [Not Recovered/Not Resolved]
  - Pruritus [Recovered/Resolved]
  - Paraesthesia [Recovered/Resolved]
  - Injection site erythema [Not Recovered/Not Resolved]
